FAERS Safety Report 24565763 (Version 1)
Quarter: 2024Q4

REPORT INFORMATION
  Report Type: Spontaneous
  Country: IN (occurrence: IN)
  Receive Date: 20241030
  Receipt Date: 20241030
  Transmission Date: 20250115
  Serious: Yes (Hospitalization)
  Sender: MYLAN
  Company Number: IN-MYLANLABS-2024M1098527

PATIENT
  Age: 3 Month
  Sex: Female

DRUGS (2)
  1. PHENYTOIN [Suspect]
     Active Substance: PHENYTOIN
     Indication: Epilepsy
     Dosage: UNK, RECEIVING FROM 5 YEARS, TRANSPLACENTAL
     Route: 064
  2. PHENYTOIN [Suspect]
     Active Substance: PHENYTOIN
     Indication: Epilepsy
     Dosage: UNK, RECEIVING FROM 5 YEARS, TRANSMAMMARY
     Route: 063

REACTIONS (7)
  - Vitamin B12 deficiency [Recovered/Resolved]
  - Anaemia megaloblastic [Recovered/Resolved]
  - Developmental regression [Recovered/Resolved]
  - Tremor [Recovered/Resolved]
  - Pneumonia [Recovered/Resolved]
  - Foetal exposure during pregnancy [Recovered/Resolved]
  - Exposure via breast milk [Unknown]
